FAERS Safety Report 6647450-0 (Version None)
Quarter: 2010Q1

REPORT INFORMATION
  Report Type: 
  Country: None (occurrence: None)
  Receive Date: 20100323
  Receipt Date: 20100323
  Transmission Date: 20100710
  Serious: Yes (Life-Threatening)
  Sender: FDA-Public Use
  Company Number: None

PATIENT
  Age: 70 Year
  Sex: Male
  Weight: 88 kg

DRUGS (1)
  1. HEPARIN [Suspect]
     Indication: ANTICOAGULANT THERAPY
     Dosage: 1000-4200 UNITS DAILY HEMODIALYSI
     Route: 010
     Dates: start: 20091026, end: 20091029

REACTIONS (1)
  - HEPARIN-INDUCED THROMBOCYTOPENIA [None]
